FAERS Safety Report 8448662-6 (Version None)
Quarter: 2012Q2

REPORT INFORMATION
  Report Type: 
  Country: None (occurrence: None)
  Receive Date: 20120619
  Receipt Date: 20120613
  Transmission Date: 20120825
  Serious: Yes (Death)
  Sender: FDA-Public Use
  Company Number: JP-MERCK-1206USA02718

PATIENT
  Age: 77 Year
  Sex: Female

DRUGS (6)
  1. METFORMIN HCL [Concomitant]
     Route: 048
  2. JANUVIA [Suspect]
     Indication: DIABETES MELLITUS
     Route: 048
     Dates: start: 20090101
  3. AMARYL [Concomitant]
     Indication: DIABETES MELLITUS
     Route: 048
  4. OLMESARTAN MEDOXOMIL [Concomitant]
     Indication: HYPERTENSION
     Route: 048
  5. MAGMITT [Concomitant]
     Route: 048
  6. FORSENID [Concomitant]
     Route: 048

REACTIONS (1)
  - DEATH [None]
